FAERS Safety Report 20736389 (Version 4)
Quarter: 2022Q3

REPORT INFORMATION
  Report Type: Other
  Country: US (occurrence: None)
  Receive Date: 20220421
  Receipt Date: 20220908
  Transmission Date: 20221026
  Serious: Yes (Other)
  Sender: FDA-Public Use
  Company Number: US-ROCHE-3071827

PATIENT
  Sex: Male

DRUGS (1)
  1. ESBRIET [Suspect]
     Active Substance: PIRFENIDONE
     Indication: Pulmonary fibrosis
     Dosage: TOMAR 1 TABLETA POR VIA ORAL 3 VECES AL DIA CON COMIDA POR 7 DIAS, DESPUES 2 TABLETA(S) POR VIA ORAL
     Route: 048

REACTIONS (11)
  - Diabetes mellitus [Unknown]
  - Productive cough [Unknown]
  - Dyspnoea [Unknown]
  - Hypertension [Unknown]
  - Cough [Unknown]
  - Dizziness [Unknown]
  - Nervousness [Unknown]
  - Bone pain [Not Recovered/Not Resolved]
  - Illness [Unknown]
  - Arthralgia [Unknown]
  - Weight loss poor [Unknown]
